FAERS Safety Report 8185075-9 (Version None)
Quarter: 2012Q1

REPORT INFORMATION
  Report Type: 
  Country: None (occurrence: None)
  Receive Date: 20120305
  Receipt Date: 20120229
  Transmission Date: 20120608
  Serious: Yes (Other)
  Sender: FDA-Public Use
  Company Number: US-PFIZER INC-K201100969

PATIENT
  Age: 24 Year
  Sex: Female

DRUGS (1)
  1. SONATA [Suspect]
     Dosage: SINGLE
     Route: 048
     Dates: start: 20080101, end: 20080101

REACTIONS (2)
  - AMNESIA [None]
  - VICTIM OF SEXUAL ABUSE [None]
